FAERS Safety Report 23463896 (Version 1)
Quarter: 2024Q1

REPORT INFORMATION
  Report Type: Spontaneous
  Country: CN (occurrence: None)
  Receive Date: 20240201
  Receipt Date: 20240201
  Transmission Date: 20240410
  Serious: Yes (Other)
  Sender: FDA-Public Use
  Company Number: CN-ROCHE-3502028

PATIENT
  Age: 49 Year
  Sex: Female

DRUGS (10)
  1. PERJETA [Suspect]
     Active Substance: PERTUZUMAB
     Indication: Breast cancer
     Dosage: THP4 REGIMEN CYCLE 1-6
     Route: 065
  2. PERJETA [Suspect]
     Active Substance: PERTUZUMAB
     Route: 041
     Dates: start: 20231226, end: 20231226
  3. HERCEPTIN [Suspect]
     Active Substance: TRASTUZUMAB
     Indication: Breast cancer
     Dosage: THP4 REGIMEN CYCLE 1-6
     Route: 041
  4. HERCEPTIN [Suspect]
     Active Substance: TRASTUZUMAB
     Route: 041
     Dates: start: 20231226, end: 20231226
  5. PACLITAXEL [Suspect]
     Active Substance: PACLITAXEL
     Indication: Breast cancer
     Dosage: THP*4 REGIMEN CYCLE 1-6
     Route: 065
  6. PACLITAXEL [Suspect]
     Active Substance: PACLITAXEL
     Route: 041
     Dates: start: 20231226, end: 20231226
  7. EPIRUBICIN [Concomitant]
     Active Substance: EPIRUBICIN
     Indication: Breast cancer
     Dosage: EC*4 REGIMEN, CYCLE 7
  8. EPIRUBICIN [Concomitant]
     Active Substance: EPIRUBICIN
     Dosage: EC*4 REGIMEN, CYCLE 7
     Dates: start: 20231226, end: 20231226
  9. CYCLOPHOSPHAMIDE [Concomitant]
     Active Substance: CYCLOPHOSPHAMIDE
     Indication: Breast cancer
     Dosage: EC*4 REGIMEN, CYCLE 7
  10. CYCLOPHOSPHAMIDE [Concomitant]
     Active Substance: CYCLOPHOSPHAMIDE
     Dosage: EC*4 REGIMEN, CYCLE 1-6
     Dates: start: 20231226, end: 20231226

REACTIONS (1)
  - Myelosuppression [Recovering/Resolving]

NARRATIVE: CASE EVENT DATE: 20240107
